FAERS Safety Report 14540194 (Version 2)
Quarter: 2018Q2

REPORT INFORMATION
  Report Type: Spontaneous
  Country: DE (occurrence: DE)
  Receive Date: 20180216
  Receipt Date: 20180430
  Transmission Date: 20180711
  Serious: Yes (Hospitalization)
  Sender: FDA-Public Use
  Company Number: PHHY2018DE026364

PATIENT
  Age: 73 Year
  Sex: Female

DRUGS (7)
  1. PREDNISONE. [Interacting]
     Active Substance: PREDNISONE
     Dosage: 5 MG, UNK
     Route: 065
  2. IBUPROFEN. [Concomitant]
     Active Substance: IBUPROFEN
     Indication: PRODUCT USED FOR UNKNOWN INDICATION
     Dosage: 600 MG, QD
     Route: 065
  3. MAGNESIUM [Concomitant]
     Active Substance: MAGNESIUM
     Indication: PRODUCT USED FOR UNKNOWN INDICATION
     Route: 065
  4. PREDNISONE. [Suspect]
     Active Substance: PREDNISONE
     Indication: STEROID THERAPY
     Dosage: 20 MG, UNK
     Route: 065
  5. PREDNISONE. [Interacting]
     Active Substance: PREDNISONE
     Dosage: 10 MG, UNK
     Route: 065
  6. CIPRAMIL [Interacting]
     Active Substance: CITALOPRAM HYDROBROMIDE
     Indication: ANTIDEPRESSANT THERAPY
     Dosage: 20 MG, QD
     Route: 048
     Dates: end: 20170722
  7. PREDNISONE. [Interacting]
     Active Substance: PREDNISONE
     Dosage: 40 MG, UNK
     Route: 065

REACTIONS (5)
  - Fall [Unknown]
  - Lumbar vertebral fracture [Unknown]
  - Hyponatraemia [Unknown]
  - Back pain [Unknown]
  - Drug interaction [Unknown]

NARRATIVE: CASE EVENT DATE: 2017
